FAERS Safety Report 8756941 (Version 1)
Quarter: 2012Q4

REPORT INFORMATION
  Report Type: 
  Country: US (occurrence: US)
  Receive Date: 20120828
  Receipt Date: 20120828
  Transmission Date: 20130627
  Serious: Yes (Other)
  Sender: FDA-Public Use
  Company Number: US-BAYER-2012-087116

PATIENT
  Age: 24 Year
  Sex: Female
  Weight: 104.31 kg

DRUGS (5)
  1. YASMIN [Suspect]
  2. MALARONE [Concomitant]
     Dosage: 250/100
     Dates: start: 20060225
  3. CIPROFLOXACIN [Concomitant]
     Dosage: 500 mg, UNK
     Dates: start: 20060225
  4. PRILOSEC [Concomitant]
  5. PREVACID [Concomitant]

REACTIONS (1)
  - Deep vein thrombosis [None]
